FAERS Safety Report 6373606-0 (Version None)
Quarter: 2009Q3

REPORT INFORMATION
  Report Type: 
  Country: None (occurrence: None)
  Receive Date: 20090924
  Receipt Date: 20090923
  Transmission Date: 20100115
  Serious: Yes (Other)
  Sender: FDA-Public Use
  Company Number: US-PFIZER INC-2009253702

PATIENT
  Sex: Female

DRUGS (3)
  1. DOXAZOSIN MESILATE [Suspect]
     Dosage: UNK
  2. AMLODIPINE BESYLATE [Suspect]
     Dosage: UNK
  3. TOPROL-XL [Suspect]
     Dosage: UNK

REACTIONS (1)
  - HYPERTENSION [None]
